FAERS Safety Report 6045856-4 (Version None)
Quarter: 2009Q1

REPORT INFORMATION
  Report Type: 
  Country: None (occurrence: None)
  Receive Date: 20090121
  Receipt Date: 20090115
  Transmission Date: 20090719
  Serious: No
  Sender: FDA-Public Use
  Company Number: US-B.I. PHARMACEUTICALS,INC./RIDGEFIELD-2008-BP-18199BP

PATIENT
  Sex: Male

DRUGS (8)
  1. SPIRIVA [Suspect]
     Indication: CHRONIC OBSTRUCTIVE PULMONARY DISEASE
     Route: 055
     Dates: start: 20080101
  2. SPIRIVA [Suspect]
     Indication: EMPHYSEMA
  3. SPIRIVA [Suspect]
     Indication: BRONCHITIS CHRONIC
  4. ADVAIR DISKUS 100/50 [Concomitant]
     Indication: DYSPNOEA
  5. PROVENTIL [Concomitant]
     Indication: DYSPNOEA
  6. PROPYL-THIOURACIL [Concomitant]
  7. PREDNISONE [Concomitant]
  8. DOXYCYCLINE [Concomitant]

REACTIONS (1)
  - EYE PAIN [None]
